FAERS Safety Report 20516746 (Version 2)
Quarter: 2022Q1

REPORT INFORMATION
  Report Type: Spontaneous
  Country: None (occurrence: IT)
  Receive Date: 20220225
  Receipt Date: 20220316
  Transmission Date: 20220423
  Serious: Yes (Other)
  Sender: FDA-Public Use
  Company Number: IT-CLINUVEL INC-2126209

PATIENT
  Age: 54 Year
  Sex: Male

DRUGS (1)
  1. SCENESSE [Suspect]
     Active Substance: AFAMELANOTIDE
     Indication: Porphyria non-acute
     Route: 058
     Dates: start: 20210531, end: 20210531

REACTIONS (3)
  - Drug hypersensitivity [Unknown]
  - Hypotension [Recovered/Resolved]
  - Rash [Unknown]

NARRATIVE: CASE EVENT DATE: 20210531
